FAERS Safety Report 20087330 (Version 3)
Quarter: 2025Q1

REPORT INFORMATION
  Report Type: Report from Study
  Country: CA (occurrence: CA)
  Receive Date: 20211118
  Receipt Date: 20250305
  Transmission Date: 20250408
  Serious: Yes (Other)
  Sender: JOHNSON AND JOHNSON
  Company Number: CA-JNJFOC-20211103635

PATIENT
  Age: 24 Year
  Sex: Female

DRUGS (3)
  1. SIMPONI [Suspect]
     Active Substance: GOLIMUMAB
     Indication: Rheumatoid arthritis
     Route: 058
  2. SIMPONI [Suspect]
     Active Substance: GOLIMUMAB
     Route: 058
     Dates: start: 20190809
  3. SIMPONI [Suspect]
     Active Substance: GOLIMUMAB
     Route: 058
     Dates: start: 20190809

REACTIONS (6)
  - Medical device removal [Unknown]
  - Product use issue [Unknown]
  - Inappropriate schedule of product administration [Unknown]
  - Inappropriate schedule of product administration [Unknown]
  - Infection [Unknown]
  - Therapy cessation [Unknown]

NARRATIVE: CASE EVENT DATE: 20190809
